FAERS Safety Report 12654515 (Version 1)
Quarter: 2016Q3

REPORT INFORMATION
  Report Type: Spontaneous
  Country: JP (occurrence: JP)
  Receive Date: 20160816
  Receipt Date: 20160816
  Transmission Date: 20161109
  Serious: Yes (Other)
  Sender: FDA-Public Use
  Company Number: JP-ROCHE-1763638

PATIENT
  Age: 56 Year
  Sex: Male
  Weight: 62 kg

DRUGS (14)
  1. TAKEPRON [Concomitant]
     Active Substance: LANSOPRAZOLE
     Indication: ULCER
     Dosage: DOSAGE IS UNCERTAIN.
     Route: 048
  2. NORVASC [Concomitant]
     Active Substance: AMLODIPINE BESYLATE
     Indication: HYPERTENSION
     Dosage: DOSAGE IS UNCERTAIN.
     Route: 048
  3. BELSOMRA [Concomitant]
     Active Substance: SUVOREXANT
     Dosage: DOSAGE IS UNCERTAIN.
     Route: 065
     Dates: start: 20160422
  4. XARELTO [Concomitant]
     Active Substance: RIVAROXABAN
     Indication: VENOUS THROMBOSIS LIMB
     Route: 065
     Dates: start: 20151112, end: 2015
  5. ALECENSA [Suspect]
     Active Substance: ALECTINIB HYDROCHLORIDE
     Indication: LUNG ADENOCARCINOMA
     Dosage: THE FRACTIONATION DOSE FREQUENCY IS UNCERTAIN.
     Route: 048
     Dates: start: 20160527
  6. PACLITAXEL. [Concomitant]
     Active Substance: PACLITAXEL
     Indication: LUNG ADENOCARCINOMA
     Route: 065
     Dates: start: 20160212, end: 20160212
  7. CARBOPLATIN. [Concomitant]
     Active Substance: CARBOPLATIN
     Indication: LUNG ADENOCARCINOMA
     Route: 065
     Dates: start: 20151113, end: 20160120
  8. ALECENSA [Suspect]
     Active Substance: ALECTINIB HYDROCHLORIDE
     Indication: LUNG ADENOCARCINOMA
     Dosage: THE FRACTIONATION DOSE FREQUENCY IS UNCERTAIN.
     Route: 048
     Dates: start: 20160401, end: 20160513
  9. AVASTIN [Suspect]
     Active Substance: BEVACIZUMAB
     Indication: LUNG ADENOCARCINOMA
     Route: 041
     Dates: start: 20151113, end: 20151203
  10. MAGMITT [Concomitant]
     Active Substance: MAGNESIUM OXIDE
     Indication: CONSTIPATION
     Dosage: DOSAGE IS UNCERTAIN.
     Route: 048
     Dates: start: 201511
  11. DECADRON [Concomitant]
     Active Substance: DEXAMETHASONE
     Indication: LUNG ADENOCARCINOMA
     Route: 048
     Dates: start: 20160411, end: 20160429
  12. CALONAL [Concomitant]
     Active Substance: ACETAMINOPHEN
     Dosage: DOSAGE IS UNCERTAIN.
     Route: 048
     Dates: start: 201511
  13. PACLITAXEL. [Concomitant]
     Active Substance: PACLITAXEL
     Indication: LUNG ADENOCARCINOMA
     Route: 065
     Dates: start: 20151113, end: 20160120
  14. CARBOPLATIN. [Concomitant]
     Active Substance: CARBOPLATIN
     Indication: LUNG ADENOCARCINOMA
     Route: 065
     Dates: start: 20160212, end: 20160212

REACTIONS (2)
  - Haemoptysis [Unknown]
  - Radiation pneumonitis [Recovering/Resolving]

NARRATIVE: CASE EVENT DATE: 20160513
